FAERS Safety Report 4963500-1 (Version None)
Quarter: 2006Q1

REPORT INFORMATION
  Report Type: 
  Country: None (occurrence: None)
  Receive Date: 20060201
  Receipt Date: 20051114
  Transmission Date: 20060701
  Serious: No
  Sender: FDA-Public Use
  Company Number: 2005PV004449

PATIENT
  Age: 63 Year
  Sex: Male
  Weight: 90.2658 kg

DRUGS (14)
  1. BYETTA [Suspect]
     Indication: DIABETES MELLITUS NON-INSULIN-DEPENDENT
     Dosage: SEE IMAGE
     Route: 058
     Dates: start: 20050902, end: 20051104
  2. BYETTA [Suspect]
     Indication: DIABETES MELLITUS NON-INSULIN-DEPENDENT
     Dosage: SEE IMAGE
     Route: 058
     Dates: start: 20051105
  3. ACTOS [Concomitant]
  4. AMARYL [Concomitant]
  5. LISINOPRIL [Concomitant]
  6. CRESTOR [Concomitant]
  7. TRICOR [Concomitant]
  8. FOLTX [Concomitant]
  9. STOOL SOFTENER [Concomitant]
  10. MULTIVITAMIN [Concomitant]
  11. ZIAC [Concomitant]
  12. ASCORBIC ACID [Concomitant]
  13. ASPIRIN [Concomitant]
  14. AMARYL [Concomitant]

REACTIONS (4)
  - ABDOMINAL DISTENSION [None]
  - DYSGEUSIA [None]
  - THIRST DECREASED [None]
  - WEIGHT DECREASED [None]
